FAERS Safety Report 23179325 (Version 2)
Quarter: 2023Q4

REPORT INFORMATION
  Report Type: Report from Study
  Country: US (occurrence: US)
  Receive Date: 20231113
  Receipt Date: 20231115
  Transmission Date: 20240110
  Serious: No
  Sender: FDA-Public Use
  Company Number: US-002147023-NVSC2023US239418

PATIENT
  Age: 68 Year
  Sex: Male

DRUGS (1)
  1. ENTRESTO [Suspect]
     Active Substance: SACUBITRIL\VALSARTAN
     Indication: Cardiac failure
     Dosage: UNK, BID, 24/26MG
     Route: 048
     Dates: start: 202309

REACTIONS (2)
  - Insomnia [Unknown]
  - Nervousness [Unknown]

NARRATIVE: CASE EVENT DATE: 20231001
